FAERS Safety Report 12909654 (Version 1)
Quarter: 2016Q4

REPORT INFORMATION
  Report Type: Spontaneous
  Country: CH (occurrence: CH)
  Receive Date: 20161104
  Receipt Date: 20161104
  Transmission Date: 20170207
  Serious: Yes (Hospitalization)
  Sender: FDA-Public Use
  Company Number: CH-B.I. PHARMACEUTICALS,INC./RIDGEFIELD-2016-BI-069887

PATIENT
  Sex: Male

DRUGS (3)
  1. GILOTRIF [Suspect]
     Active Substance: AFATINIB
     Route: 065
  2. GILOTRIF [Suspect]
     Active Substance: AFATINIB
     Indication: EGFR GENE MUTATION
     Dosage: TAKEN IN THE MORNING
     Route: 065
  3. GILOTRIF [Suspect]
     Active Substance: AFATINIB
     Route: 065

REACTIONS (7)
  - Abdominal pain [Unknown]
  - Paronychia [Not Recovered/Not Resolved]
  - Diarrhoea [Unknown]
  - Acute myocardial infarction [Unknown]
  - Chest pain [Unknown]
  - Rash [Unknown]
  - Mucosal inflammation [Unknown]
